FAERS Safety Report 4859712-8 (Version None)
Quarter: 2005Q4

REPORT INFORMATION
  Report Type: 
  Country: None (occurrence: None)
  Receive Date: 20051219
  Receipt Date: 20051109
  Transmission Date: 20060501
  Serious: Yes (Death, Hospitalization)
  Sender: FDA-Public Use
  Company Number: FR-BRISTOL-MYERS SQUIBB COMPANY-13175112

PATIENT
  Age: 69 Year
  Sex: Male
  Weight: 66 kg

DRUGS (13)
  1. TAXOL [Suspect]
     Route: 042
     Dates: start: 20050717, end: 20050810
  2. PARACETAMOL [Suspect]
     Route: 048
     Dates: start: 20050804, end: 20050812
  3. OFLOXACIN [Suspect]
     Dates: start: 20050804, end: 20050812
  4. SKENAN PROL RELEASE GRAN CAPS 200 MG [Concomitant]
     Dates: start: 20050721, end: 20050812
  5. MORPHINE SULFATE [Concomitant]
     Route: 048
     Dates: start: 20050721, end: 20050812
  6. LASILIX [Concomitant]
     Dates: start: 20050721, end: 20050812
  7. SOLU-MEDROL [Concomitant]
  8. FORLAX [Concomitant]
  9. LANSOYL [Concomitant]
  10. NEXIUM [Concomitant]
  11. NEURONTIN [Concomitant]
  12. DICYNONE [Concomitant]
  13. EXACYL [Concomitant]

REACTIONS (3)
  - GASTROINTESTINAL HAEMORRHAGE [None]
  - HEPATITIS [None]
  - RENAL FAILURE ACUTE [None]
